FAERS Safety Report 21088292 (Version 2)
Quarter: 2022Q3

REPORT INFORMATION
  Report Type: Other
  Country: US (occurrence: None)
  Receive Date: 20220715
  Receipt Date: 20220730
  Transmission Date: 20221027
  Serious: Yes (Other)
  Sender: FDA-Public Use
  Company Number: US-ROCHE-3133122

PATIENT
  Sex: Female

DRUGS (2)
  1. AVASTIN [Suspect]
     Active Substance: BEVACIZUMAB
     Indication: Colorectal cancer metastatic
     Dosage: INFUSE 262MG INTRAVENOUSLY EVERY 14 DAYS, FORMULATION : VIAL
     Route: 042
  2. AVASTIN [Suspect]
     Active Substance: BEVACIZUMAB
     Dosage: INFUSE 392MG INTRAVENOUSLY EVERY 21 DAYS, FORMULATION: VIAL
     Route: 042

REACTIONS (1)
  - Immune thrombocytopenia [Unknown]
